FAERS Safety Report 12721302 (Version 3)
Quarter: 2016Q4

REPORT INFORMATION
  Report Type: Report from Study
  Country: CA (occurrence: CA)
  Receive Date: 20160907
  Receipt Date: 20161229
  Transmission Date: 20170207
  Serious: Yes (Other)
  Sender: FDA-Public Use
  Company Number: CA-JNJFOC-20160704096

PATIENT
  Age: 63 Year
  Sex: Male
  Weight: 114 kg

DRUGS (19)
  1. REMICADE [Suspect]
     Active Substance: INFLIXIMAB
     Indication: CROHN^S DISEASE
     Route: 042
     Dates: start: 20121023
  2. PENTASA [Concomitant]
     Active Substance: MESALAMINE
     Route: 065
  3. LASIX [Concomitant]
     Active Substance: FUROSEMIDE
     Route: 065
  4. REMICADE [Suspect]
     Active Substance: INFLIXIMAB
     Indication: CROHN^S DISEASE
     Route: 042
     Dates: start: 20160712
  5. NORVASC [Concomitant]
     Active Substance: AMLODIPINE BESYLATE
     Route: 065
  6. LIPIDIL [Concomitant]
     Active Substance: FENOFIBRATE
     Route: 065
  7. VENTOLIN [Concomitant]
     Active Substance: ALBUTEROL SULFATE
     Route: 065
  8. REMICADE [Suspect]
     Active Substance: INFLIXIMAB
     Indication: CROHN^S DISEASE
     Route: 042
     Dates: start: 20160831
  9. REMICADE [Suspect]
     Active Substance: INFLIXIMAB
     Indication: CROHN^S DISEASE
     Route: 042
     Dates: start: 20161026
  10. ADVAIR HFA [Concomitant]
     Active Substance: FLUTICASONE PROPIONATE\SALMETEROL XINAFOATE
     Route: 065
  11. REMICADE [Suspect]
     Active Substance: INFLIXIMAB
     Indication: CROHN^S DISEASE
     Route: 042
     Dates: start: 20160706
  12. PANTOLOC [Concomitant]
     Active Substance: PANTOPRAZOLE SODIUM
     Route: 065
  13. CRESTOR [Concomitant]
     Active Substance: ROSUVASTATIN CALCIUM
     Route: 065
  14. VOLTAREN [Concomitant]
     Active Substance: DICLOFENAC SODIUM
     Dosage: EN APPL PRN (AS NECESSARY)
     Route: 065
  15. VITAMIN B3 [Concomitant]
     Active Substance: NIACIN
     Route: 065
  16. REMICADE [Suspect]
     Active Substance: INFLIXIMAB
     Indication: CROHN^S DISEASE
     Dosage: 29TH INFUSION
     Route: 042
     Dates: start: 20161221
  17. ATIVAN [Concomitant]
     Active Substance: LORAZEPAM
     Dosage: 1 TO 2 TABLETS
     Route: 065
  18. VITAMIN B12 [Concomitant]
     Active Substance: CYANOCOBALAMIN
     Dosage: MG ^IM^
     Route: 065
  19. EURO D [Concomitant]
     Route: 065

REACTIONS (13)
  - Peripheral swelling [Recovered/Resolved]
  - Crohn^s disease [Recovering/Resolving]
  - Fatigue [Not Recovered/Not Resolved]
  - Psoriasis [Unknown]
  - Intestinal obstruction [Recovered/Resolved]
  - Infusion related reaction [Recovering/Resolving]
  - Muscle spasms [Unknown]
  - Cardiac discomfort [Unknown]
  - Abdominal pain [Not Recovered/Not Resolved]
  - Headache [Unknown]
  - Iron deficiency anaemia [Unknown]
  - Muscle spasms [Recovering/Resolving]
  - Hyperhidrosis [Unknown]

NARRATIVE: CASE EVENT DATE: 2016
